FAERS Safety Report 25779567 (Version 3)
Quarter: 2025Q4

REPORT INFORMATION
  Report Type: Report from Study
  Country: EU (occurrence: EU)
  Receive Date: 20250909
  Receipt Date: 20251107
  Transmission Date: 20260118
  Serious: Yes (Death, Life-Threatening, Hospitalization)
  Sender: JOHNSON AND JOHNSON
  Company Number: EU-JNJFOC-20250907787

PATIENT
  Age: 70 Year
  Sex: Female
  Weight: 65.0 kg

DRUGS (3)
  1. TECLISTAMAB [Suspect]
     Active Substance: TECLISTAMAB
     Indication: Plasma cell myeloma
     Dates: start: 20230704, end: 20230704
  2. TECLISTAMAB [Suspect]
     Active Substance: TECLISTAMAB
     Dosage: STEP-UP DOSE 2
     Dates: start: 20230706, end: 20230706
  3. TECLISTAMAB [Suspect]
     Active Substance: TECLISTAMAB
     Dosage: FIRST MAINTENANCE DOSE
     Dates: start: 20230713, end: 20230713

REACTIONS (3)
  - Pulmonary sepsis [Fatal]
  - Septic shock [Fatal]
  - Respiratory tract infection [Recovered/Resolved]

NARRATIVE: CASE EVENT DATE: 20231001
